FAERS Safety Report 24080632 (Version 2)
Quarter: 2024Q3

REPORT INFORMATION
  Report Type: Report from Study
  Country: US (occurrence: US)
  Receive Date: 20240711
  Receipt Date: 20240717
  Transmission Date: 20241016
  Serious: Yes (Hospitalization)
  Sender: KARYOPHARM THERAPEUTICS
  Company Number: US-KARYOPHARM-2024KPT001284

PATIENT
  Age: 53 Year
  Sex: Male
  Weight: 89.7 kg

DRUGS (12)
  1. SELINEXOR [Suspect]
     Active Substance: SELINEXOR
     Indication: Glioblastoma
     Dosage: 80 MG, WEEKLY
     Route: 048
     Dates: start: 20240614
  2. ASPIRIN [Concomitant]
     Active Substance: ASPIRIN
     Indication: Prophylaxis
     Dosage: 81 MG, QD (DAILY)
  3. DEXAMETHASONE [Concomitant]
     Active Substance: DEXAMETHASONE
     Indication: Glioblastoma
     Dosage: 3 MG, QD (DAILY)
     Dates: start: 20240611
  4. FLUOXETINE [Concomitant]
     Active Substance: FLUOXETINE HYDROCHLORIDE
     Indication: Anxiety
     Dosage: 10 MG, QD (DAILY)
     Dates: start: 20230908
  5. FLUOXETINE [Concomitant]
     Active Substance: FLUOXETINE HYDROCHLORIDE
     Indication: Depression
  6. FUROSEMIDE [Concomitant]
     Active Substance: FUROSEMIDE
     Indication: Polyuria
     Dosage: 20 MG, QOD
     Dates: start: 20240621
  7. LACOSAMIDE [Concomitant]
     Active Substance: LACOSAMIDE
     Indication: Seizure prophylaxis
     Dosage: 50 MG, QD (DAILY)
     Dates: start: 20240506
  8. LAMOTRIGINE [Concomitant]
     Active Substance: LAMOTRIGINE
     Indication: Seizure prophylaxis
     Dosage: 25 MG, QD (DAILY)
     Dates: start: 20240621, end: 20240705
  9. LAMOTRIGINE [Concomitant]
     Active Substance: LAMOTRIGINE
     Dosage: 25 MG, BID
     Dates: start: 20240706
  10. PANTOPRAZOLE [Concomitant]
     Active Substance: PANTOPRAZOLE
     Indication: Gastrooesophageal reflux disease
     Dosage: 40 MG
     Dates: start: 20231006
  11. ONDANSETRON [Concomitant]
     Active Substance: ONDANSETRON
     Indication: Premedication
     Dosage: 8 MG, PRN
     Dates: start: 20240614
  12. OLANZAPINE [Concomitant]
     Active Substance: OLANZAPINE
     Indication: Premedication
     Dosage: 2.5 MG, PRN
     Dates: start: 20240614

REACTIONS (1)
  - Personality change [Recovered/Resolved]

NARRATIVE: CASE EVENT DATE: 20240707
